FAERS Safety Report 10271930 (Version 3)
Quarter: 2015Q1

REPORT INFORMATION
  Report Type: Report from Study
  Country: US (occurrence: US)
  Receive Date: 20140702
  Receipt Date: 20150109
  Transmission Date: 20150720
  Serious: Yes (Life-Threatening, Hospitalization)
  Sender: FDA-Public Use
  Company Number: PHEH2014US012932

PATIENT
  Age: 50 Year
  Sex: Male
  Weight: 141 kg

DRUGS (3)
  1. GILENYA [Suspect]
     Active Substance: FINGOLIMOD HYDROCHLORIDE
     Dosage: 0.5 MG, QD
     Route: 065
     Dates: start: 20140730
  2. GILENYA [Suspect]
     Active Substance: FINGOLIMOD HYDROCHLORIDE
     Indication: MULTIPLE SCLEROSIS
     Dosage: 0.5 MG, QD
     Route: 048
     Dates: start: 20120405
  3. GILENYA [Suspect]
     Active Substance: FINGOLIMOD HYDROCHLORIDE
     Dosage: 0.5 MG, QD
     Route: 048
     Dates: end: 20131231

REACTIONS (14)
  - Chronic obstructive pulmonary disease [Unknown]
  - Pulmonary embolism [Recovering/Resolving]
  - Benign prostatic hyperplasia [Unknown]
  - Thrombosis [Unknown]
  - Anaemia [Unknown]
  - Peripheral swelling [Unknown]
  - Muscle spasticity [Unknown]
  - Urinary tract infection [Unknown]
  - Erythema [Unknown]
  - Tenderness [Unknown]
  - Deep vein thrombosis [Recovering/Resolving]
  - Cellulitis [Recovered/Resolved]
  - Mental status changes [Unknown]
  - Fatigue [Unknown]

NARRATIVE: CASE EVENT DATE: 20140616
